FAERS Safety Report 11651516 (Version 1)
Quarter: 2015Q4

REPORT INFORMATION
  Report Type: Spontaneous
  Country: US (occurrence: None)
  Receive Date: 20151021
  Receipt Date: 20151021
  Transmission Date: 20160304
  Serious: Yes (Death)
  Sender: FDA-Public Use
  Company Number: None

PATIENT
  Age: 71 Year
  Sex: Male

DRUGS (7)
  1. HYDROCO/SPAP [Concomitant]
  2. ONDANSETRON 4MG/2MG HOSPIRA [Suspect]
     Active Substance: ONDANSETRON
  3. DEXAMETH PHOS 10 MG FRESENIUS [Suspect]
     Active Substance: DEXAMETHASONE PHOSPHATE
     Indication: PANCREATIC CARCINOMA
     Route: 042
     Dates: start: 201509, end: 201509
  4. GEMCITABINE [Suspect]
     Active Substance: GEMCITABINE\GEMCITABINE HYDROCHLORIDE
  5. HUMALOG [Concomitant]
     Active Substance: INSULIN LISPRO
  6. ABRAXANE [Suspect]
     Active Substance: PACLITAXEL
  7. VICODIN [Concomitant]
     Active Substance: ACETAMINOPHEN\HYDROCODONE BITARTRATE

REACTIONS (1)
  - Death [None]

NARRATIVE: CASE EVENT DATE: 20150920
